FAERS Safety Report 6676460-2 (Version None)
Quarter: 2010Q2

REPORT INFORMATION
  Report Type: 
  Country: None (occurrence: None)
  Receive Date: 20100412
  Receipt Date: 20100406
  Transmission Date: 20101027
  Serious: Yes (Death)
  Sender: FDA-Public Use
  Company Number: PHEH2010US03400

PATIENT
  Sex: Female

DRUGS (2)
  1. ESTROGEN [Suspect]
     Indication: HORMONE REPLACEMENT THERAPY
  2. MEDROXYPROGESTERONE ACETATE [Suspect]
     Indication: HORMONE REPLACEMENT THERAPY

REACTIONS (14)
  - ANXIETY [None]
  - BIOPSY BREAST [None]
  - BREAST CANCER [None]
  - BREAST LUMP REMOVAL [None]
  - BREAST RECONSTRUCTION [None]
  - DECREASED INTEREST [None]
  - DEFORMITY [None]
  - DISABILITY [None]
  - EMOTIONAL DISTRESS [None]
  - GENERAL PHYSICAL HEALTH DETERIORATION [None]
  - LIFE EXPECTANCY SHORTENED [None]
  - MODIFIED RADICAL MASTECTOMY [None]
  - PAIN [None]
  - SIMPLE MASTECTOMY [None]
